FAERS Safety Report 5423702-7 (Version None)
Quarter: 2007Q3

REPORT INFORMATION
  Report Type: 
  Country: None (occurrence: None)
  Receive Date: 20070725
  Receipt Date: 20070404
  Transmission Date: 20080115
  Serious: Yes (Other)
  Sender: FDA-Public Use
  Company Number: US200704001046

PATIENT
  Age: 43 Year
  Sex: Female

DRUGS (2)
  1. STRATTERA [Suspect]
     Dosage: 40 MG, DAILY (1/D),
     Dates: start: 20040101
  2. LISINOPRIL [Concomitant]

REACTIONS (5)
  - AGEUSIA [None]
  - ANOREXIA [None]
  - CEREBROVASCULAR ACCIDENT [None]
  - MEMORY IMPAIRMENT [None]
  - WEIGHT DECREASED [None]
